FAERS Safety Report 6070691-0 (Version None)
Quarter: 2009Q1

REPORT INFORMATION
  Report Type: 
  Country: None (occurrence: None)
  Receive Date: 20090209
  Receipt Date: 20090112
  Transmission Date: 20090719
  Serious: Yes (Death, Hospitalization)
  Sender: FDA-Public Use
  Company Number: DE-PFIZER INC-2008098885

PATIENT

DRUGS (8)
  1. SUNITINIB MALATE [Suspect]
     Indication: METASTATIC RENAL CELL CARCINOMA
     Dosage: 50 MG, 1X/DAY
     Route: 048
     Dates: start: 20080905
  2. TEFILIN [Concomitant]
     Dates: start: 20080811
  3. SKID [Concomitant]
     Dosage: 100 MG, 1X/DAY
  4. DIFLUCAN [Concomitant]
     Dosage: 100 MG, 1X/DAY
  5. ALLO [Concomitant]
     Dosage: 100 MG, 1X/DAY
  6. FORTECORTIN [Concomitant]
     Dosage: 2 MG, 1X/DAY
  7. LASIX [Concomitant]
     Dosage: 40 MG, 1X/DAY
  8. METOPROLOL SUCCINATE [Concomitant]
     Dosage: UNK

REACTIONS (3)
  - BRONCHOPNEUMONIA [None]
  - DEATH [None]
  - DYSPNOEA [None]
